FAERS Safety Report 24858255 (Version 2)
Quarter: 2025Q3

REPORT INFORMATION
  Report Type: Report from Study
  Country: CO (occurrence: CO)
  Receive Date: 20250117
  Receipt Date: 20250809
  Transmission Date: 20251020
  Serious: Yes (Hospitalization)
  Sender: ALEXION PHARMACEUTICALS
  Company Number: CO-AstraZeneca-CH-00783266A

PATIENT
  Age: 15 Year
  Sex: Female
  Weight: 24 kg

DRUGS (1)
  1. SOLIRIS [Suspect]
     Active Substance: ECULIZUMAB
     Indication: Atypical haemolytic uraemic syndrome
     Dosage: 600 MILLIGRAM, Q2W
     Dates: start: 20240806

REACTIONS (1)
  - Haematological infection [Not Recovered/Not Resolved]

NARRATIVE: CASE EVENT DATE: 20250106
